FAERS Safety Report 6268535-7 (Version None)
Quarter: 2009Q3

REPORT INFORMATION
  Report Type: 
  Country: None (occurrence: None)
  Receive Date: 20090713
  Receipt Date: 20090713
  Transmission Date: 20100115
  Serious: Yes (Death)
  Sender: FDA-Public Use
  Company Number: None

PATIENT
  Age: 80 Year
  Sex: Female
  Weight: 45.3597 kg

DRUGS (4)
  1. ABILIFY [Suspect]
     Indication: AGGRESSION
     Dosage: 5MG DAILY PO
     Route: 048
     Dates: start: 20090320, end: 20090418
  2. ABILIFY [Suspect]
     Indication: DIET REFUSAL
     Dosage: 5MG DAILY PO
     Route: 048
     Dates: start: 20090320, end: 20090418
  3. HALDOL [Suspect]
     Indication: AGGRESSION
     Dosage: 0.5MG DAILY PO
     Route: 048
     Dates: start: 20090418, end: 20090515
  4. HALDOL [Suspect]
     Indication: DIET REFUSAL
     Dosage: 0.5MG DAILY PO
     Route: 048
     Dates: start: 20090418, end: 20090515

REACTIONS (10)
  - ABASIA [None]
  - ACTIVITIES OF DAILY LIVING IMPAIRED [None]
  - CARDIAC FAILURE [None]
  - COGNITIVE DISORDER [None]
  - CONDITION AGGRAVATED [None]
  - DEMENTIA [None]
  - FAECAL INCONTINENCE [None]
  - FAILURE TO THRIVE [None]
  - SPEECH DISORDER [None]
  - URINARY INCONTINENCE [None]
